FAERS Safety Report 9238711 (Version 1)
Quarter: 2013Q1

REPORT INFORMATION
  Report Type: Spontaneous
  Country: US (occurrence: None)
  Receive Date: 20121106
  Receipt Date: 20121106
  Transmission Date: 20140127
  Serious: No
  Sender: FDA-Public Use
  Company Number: 1000036993

PATIENT
  Age: 66 Year
  Sex: Female
  Weight: 83.4 kg

DRUGS (7)
  1. DALIRESP [Suspect]
     Indication: CHRONIC OBSTRUCTIVE PULMONARY DISEASE
     Dates: start: 201206
  2. SYMBICORT (BUDESONIDE W/FORMOTEROL) (BUDESERIDE W/FORMOTEROL) [Concomitant]
  3. SPIRIVA (TIOTROPIUM BROMIDE) (TIOTROPIUM BROMIDE) [Concomitant]
  4. COMBIVENT (COMBIVENT (COMBIVENT) [Concomitant]
  5. CORICIDIN [Concomitant]
  6. CELEXA (CITALOPRAM HYDROBROMIDE) (CITALOPRAM HYDROCHLORIDE) [Concomitant]
  7. ASPIRIN (ACETYL SALICYLIC ACID) (ACETYL SALICYLIC ACID) [Concomitant]

REACTIONS (2)
  - Weight decreased [None]
  - Tremor [None]
